FAERS Safety Report 22324847 (Version 1)
Quarter: 2023Q2

REPORT INFORMATION
  Report Type: Spontaneous
  Country: US (occurrence: US)
  Receive Date: 20230516
  Receipt Date: 20230516
  Transmission Date: 20230722
  Serious: No
  Sender: FDA-Public Use
  Company Number: US-PFIZER INC-PV202200033891

PATIENT
  Age: 83 Year
  Sex: Female
  Weight: 61.234 kg

DRUGS (6)
  1. IBRANCE [Suspect]
     Active Substance: PALBOCICLIB
     Indication: Breast cancer metastatic
     Dosage: 75 MG
     Dates: start: 202201, end: 2022
  2. IBRANCE [Suspect]
     Active Substance: PALBOCICLIB
     Dosage: 75 MG
     Dates: start: 202203, end: 2022
  3. IBRANCE [Suspect]
     Active Substance: PALBOCICLIB
     Dosage: WAS CHANGED DOWN TO EITHER 50 OR 25
     Dates: start: 2022
  4. FENTANYL [Concomitant]
     Active Substance: FENTANYL
     Dosage: UNK, CYCLIC (TAKE A FENTANYL PATCH THAT GETS CHANGED EVERY THIRD DAY)
  5. REGLAN [Concomitant]
     Active Substance: METOCLOPRAMIDE HYDROCHLORIDE
     Indication: Nausea
     Dosage: UNK
  6. ZOFRAN ODT [Concomitant]
     Active Substance: ONDANSETRON HYDROCHLORIDE
     Indication: Nausea
     Dosage: UNK

REACTIONS (7)
  - Fatigue [Unknown]
  - Stomatitis [Unknown]
  - Nausea [Unknown]
  - Laboratory test abnormal [Unknown]
  - Product dispensing error [Unknown]
  - Product dose omission issue [Unknown]
  - Intentional underdose [Unknown]

NARRATIVE: CASE EVENT DATE: 20220101
